FAERS Safety Report 15598870 (Version 2)
Quarter: 2019Q2

REPORT INFORMATION
  Report Type: Spontaneous
  Country: US (occurrence: US)
  Receive Date: 20181108
  Receipt Date: 20190610
  Transmission Date: 20190711
  Serious: No
  Sender: FDA-Public Use
  Company Number: US-PFIZER INC-2018457278

PATIENT
  Age: 64 Year
  Sex: Female

DRUGS (1)
  1. METHOTREXATE SODIUM. [Suspect]
     Active Substance: METHOTREXATE SODIUM
     Indication: ARTHRITIS
     Dosage: 22.5 MG, 2X/WEEK (2.5MG 9 TABS, 2 WEEK)
     Dates: start: 1990

REACTIONS (1)
  - Peripheral swelling [Recovered/Resolved]
